FAERS Safety Report 16704087 (Version 3)
Quarter: 2019Q3

REPORT INFORMATION
  Report Type: Spontaneous
  Country: DE (occurrence: DE)
  Receive Date: 20190814
  Receipt Date: 20190920
  Transmission Date: 20191004
  Serious: Yes (Life-Threatening, Hospitalization, Other)
  Sender: FDA-Public Use
  Company Number: PHHY2019DE188565

PATIENT
  Age: 63 Year
  Sex: Male
  Weight: 120 kg

DRUGS (8)
  1. TRAMETINIB [Suspect]
     Active Substance: TRAMETINIB
     Dosage: 1 MG, QD
     Route: 065
  2. BIFITERAL [Concomitant]
     Active Substance: LACTULOSE
     Indication: PRODUCT USED FOR UNKNOWN INDICATION
  3. TRAMETINIB [Suspect]
     Active Substance: TRAMETINIB
     Indication: SMALL CELL LUNG CANCER
     Dosage: 2 MG, UNK
     Route: 065
  4. XARELTO [Concomitant]
     Active Substance: RIVAROXABAN
     Indication: PULMONARY EMBOLISM
     Dosage: 20 MG, UNK (THERAPIE BEI ENTLASSUNG BEENDET)
     Route: 065
  5. DABRAFENIB [Suspect]
     Active Substance: DABRAFENIB
     Dosage: 50 MG, BID
     Route: 065
  6. VERAPAMIL [Concomitant]
     Active Substance: VERAPAMIL HYDROCHLORIDE
     Indication: PRODUCT USED FOR UNKNOWN INDICATION
     Dosage: 80 MG, QD 2 SEPARATED DOSES
     Route: 065
  7. DABRAFENIB [Suspect]
     Active Substance: DABRAFENIB
     Indication: SMALL CELL LUNG CANCER
     Dosage: 75 MG, UNK
     Route: 065
  8. TOREM [Concomitant]
     Active Substance: TORSEMIDE
     Indication: PRODUCT USED FOR UNKNOWN INDICATION
     Dosage: 10 MG, QD
     Route: 065

REACTIONS (17)
  - Acute kidney injury [Not Recovered/Not Resolved]
  - Drug-induced liver injury [Not Recovered/Not Resolved]
  - Hepatic failure [Unknown]
  - Neoplasm malignant [Unknown]
  - Cardiac failure [Unknown]
  - Transaminases increased [Not Recovered/Not Resolved]
  - Pericardial effusion [Unknown]
  - Transaminases decreased [Unknown]
  - Dyspnoea [Unknown]
  - Metastases to liver [Unknown]
  - Ascites [Not Recovered/Not Resolved]
  - Cardiogenic shock [Unknown]
  - Sleep apnoea syndrome [Unknown]
  - Pulmonary embolism [Unknown]
  - Epistaxis [Unknown]
  - Asthma [Unknown]
  - Gastritis [Unknown]

NARRATIVE: CASE EVENT DATE: 201808
